FAERS Safety Report 8169798-3 (Version None)
Quarter: 2012Q1

REPORT INFORMATION
  Report Type: 
  Country: None (occurrence: None)
  Receive Date: 20120228
  Receipt Date: 20120216
  Transmission Date: 20120608
  Serious: Yes (Hospitalization)
  Sender: FDA-Public Use
  Company Number: KR-BRISTOL-MYERS SQUIBB COMPANY-16414799

PATIENT
  Age: 19 Year
  Sex: Female

DRUGS (2)
  1. ATIVAN [Suspect]
     Indication: SLEEP DISORDER
     Route: 065
     Dates: start: 20100720, end: 20100927
  2. ABILIFY [Suspect]
     Indication: PSYCHOTIC DISORDER
     Route: 048
     Dates: start: 20100714, end: 20100920

REACTIONS (1)
  - CONDITION AGGRAVATED [None]
